FAERS Safety Report 24191223 (Version 2)
Quarter: 2024Q3

REPORT INFORMATION
  Report Type: Spontaneous
  Country: IT (occurrence: IT)
  Receive Date: 20240808
  Receipt Date: 20240823
  Transmission Date: 20241016
  Serious: Yes (Other)
  Sender: TEVA
  Company Number: IT-TEVA-VS-3229938

PATIENT
  Age: 15 Year
  Sex: Male

DRUGS (15)
  1. DOXORUBICIN [Suspect]
     Active Substance: DOXORUBICIN
     Indication: Hodgkin^s disease
     Dosage: RECEIVED 4-CYCLE OF DOXORUBICIN ON DAY 1
     Route: 065
  2. DOXORUBICIN [Suspect]
     Active Substance: DOXORUBICIN
     Indication: Hodgkin^s disease
     Dosage: RECEIVED 2-CYCLE DOXORUBICIN DAY +1 + 15
     Route: 065
  3. DACARBAZINE [Suspect]
     Active Substance: DACARBAZINE
     Indication: Hodgkin^s disease
     Dosage: RECEIVED 4-CYCLES OF DACARBAZINE ON DAY?1 TO 3
     Route: 042
  4. DEXAMETHASONE [Suspect]
     Active Substance: DEXAMETHASONE
     Indication: Hodgkin^s disease
     Dosage: RECEIVED 4-CYCLES OF DEXAMETHASONE ON DAYS-1 TO 4
     Route: 065
  5. BRENTUXIMAB VEDOTIN [Suspect]
     Active Substance: BRENTUXIMAB VEDOTIN
     Indication: Hodgkin^s disease
     Dosage: RECEIVED BRENTUXIMAB-VEDOTIN  FOR A TOTAL OF 12 DOSES
     Route: 065
  6. BRENTUXIMAB VEDOTIN [Suspect]
     Active Substance: BRENTUXIMAB VEDOTIN
     Indication: Hodgkin^s disease
     Dosage: RECEIVED 4-CYCLE OF BRENTUXIMAB-VEDOTIN ON DAY 1
     Route: 042
  7. PREDNISONE [Suspect]
     Active Substance: PREDNISONE
     Indication: Hodgkin^s disease
     Dosage: RECEIVED 4-CYCLES OF PREDNISONE ON DAY 1 TO 8
     Route: 048
  8. PREDNISONE [Suspect]
     Active Substance: PREDNISONE
     Indication: Hodgkin^s disease
     Dosage: RECEIVED 2-CYCLES OF PREDNISONE ON DAY 1 TO 15
     Route: 048
  9. ETOPOSIDE [Suspect]
     Active Substance: ETOPOSIDE
     Indication: Hodgkin^s disease
     Dosage: RECEIVED 2-CYCLES OF ETOPOSIDE ON DAY-1 TO 5
     Route: 065
  10. ETOPOSIDE [Suspect]
     Active Substance: ETOPOSIDE
     Indication: Hodgkin^s disease
     Dosage: RECEIVED 4 CYCLE ETOPOSIDE ON DAY-1 TO 3
     Route: 065
  11. CYTARABINE [Suspect]
     Active Substance: CYTARABINE
     Indication: Hodgkin^s disease
     Dosage: RECEIVED 4-CYCLES OF CYTARABINE 2G/M2 EVERY 12-HOURS, 3-HOURS FOR EACH INFUSION, DAY-2
     Route: 065
  12. ONCOVIN [Suspect]
     Active Substance: VINCRISTINE SULFATE
     Indication: Hodgkin^s disease
     Dosage: RECEIVED 4-CYCLE VINCRISTINE, CAPPING DOSE 2?MG, DAY +1 + 8
     Route: 042
  13. ONCOVIN [Suspect]
     Active Substance: VINCRISTINE SULFATE
     Indication: Hodgkin^s disease
     Dosage: RECEIVED 2-CYCLES OF VINCRISTINE, CAPPING DOSE 2MG, DAY +1 + 8 + 15
     Route: 042
  14. CYCLOPHOSPHAMIDE [Suspect]
     Active Substance: CYCLOPHOSPHAMIDE
     Indication: Hodgkin^s disease
     Dosage: RECEIVED 4-CYCLES OF CYCLOPHOSPHAMIDE ON DAY-1 AND DAY 2
     Route: 042
  15. CISPLATIN [Suspect]
     Active Substance: CISPLATIN
     Indication: Hodgkin^s disease
     Dosage: RECEIVED 4-CYCLES OF CISPLATIN, CONTINUOUS FOR 24-HOURS, DAY 1
     Route: 042

REACTIONS (5)
  - Drug ineffective [Unknown]
  - Hepatotoxicity [Unknown]
  - Anaemia [Unknown]
  - Leukopenia [Unknown]
  - Thrombocytopenia [Unknown]
